FAERS Safety Report 9391596 (Version 4)
Quarter: 2014Q1

REPORT INFORMATION
  Report Type: Spontaneous
  Country: US (occurrence: None)
  Receive Date: 20130705
  Receipt Date: 20140110
  Transmission Date: 20141002
  Serious: Yes (Hospitalization)
  Sender: FDA-Public Use
  Company Number: KAD201306-000772

PATIENT
  Age: 58 Year
  Sex: Male

DRUGS (3)
  1. RIBAVIRIN [Suspect]
     Indication: HEPATITIS C
     Route: 048
     Dates: start: 20130103, end: 20130613
  2. PEGINTERFERON ALFA-2A [Suspect]
     Indication: HEPATITIS C
     Route: 058
     Dates: start: 20130103
  3. GSK2336805 (GSK2336805) [Suspect]
     Indication: HEPATITIS C
     Route: 048
     Dates: start: 20130103, end: 20130327

REACTIONS (3)
  - Otitis externa [None]
  - Cellulitis [None]
  - Infection in an immunocompromised host [None]
